FAERS Safety Report 17318485 (Version 2)
Quarter: 2020Q1

REPORT INFORMATION
  Report Type: Report from Study
  Country: US (occurrence: US)
  Receive Date: 20200124
  Receipt Date: 20200207
  Transmission Date: 20200409
  Serious: Yes (Hospitalization, Disabling)
  Sender: FDA-Public Use
  Company Number: US-ACTELION-A-NJ2020-200399

PATIENT
  Age: 69 Year
  Sex: Female
  Weight: 70.3 kg

DRUGS (15)
  1. TADALAFIL. [Concomitant]
     Active Substance: TADALAFIL
  2. ALBUTEROL SULFATE. [Concomitant]
     Active Substance: ALBUTEROL SULFATE
     Dosage: 90 MCG, 2 PUFFS INHALED EVERY 4 TO 6 HOURS
  3. FLUTICASONE. [Concomitant]
     Active Substance: FLUTICASONE
     Dosage: 50 MCG, 2 SPRAY
  4. ASPIRIN. [Concomitant]
     Active Substance: ASPIRIN
     Dosage: 81 MG, QD
     Route: 048
  5. CETRIZINE [Concomitant]
     Active Substance: CETIRIZINE HYDROCHLORIDE
     Dosage: 10 MG, QD
     Route: 048
  6. UPTRAVI [Suspect]
     Active Substance: SELEXIPAG
     Dosage: 200 UNK
     Route: 048
  7. LEVOTHYROXINE. [Concomitant]
     Active Substance: LEVOTHYROXINE
     Dosage: 137 MCG, QD
     Route: 048
  8. UPTRAVI [Suspect]
     Active Substance: SELEXIPAG
     Indication: PULMONARY HYPERTENSION
     Dosage: 1600 MCG, BID
     Route: 048
  9. LETAIRIS [Concomitant]
     Active Substance: AMBRISENTAN
  10. AMLODIPINE [Concomitant]
     Active Substance: AMLODIPINE BESYLATE
  11. FLUTICASONE. [Concomitant]
     Active Substance: FLUTICASONE
     Dosage: 110 MCG
  12. MUPIROCIN. [Concomitant]
     Active Substance: MUPIROCIN
     Dosage: 2 % OINTMENT, AS DIRECTED BID
  13. FUROSEMIDE. [Concomitant]
     Active Substance: FUROSEMIDE
     Dosage: 20 MG, 2 TABLETS BID
     Route: 048
  14. OMEPRAZOLE. [Concomitant]
     Active Substance: OMEPRAZOLE
     Dosage: 20 MG, QD
  15. UMECLIDINIUM W/VILANTEROL [Concomitant]
     Dosage: 62.5 MCG - 25 MCG, 1 PUFF DAILY

REACTIONS (4)
  - Product dose omission [Unknown]
  - Pulmonary arterial hypertension [Recovered/Resolved]
  - Dyspnoea [Recovered/Resolved]
  - Fluid overload [Recovered/Resolved]

NARRATIVE: CASE EVENT DATE: 20191227
